FAERS Safety Report 9281328 (Version 1)
Quarter: 2013Q2

REPORT INFORMATION
  Report Type: Spontaneous
  Country: US (occurrence: US)
  Receive Date: 20130509
  Receipt Date: 20130509
  Transmission Date: 20140414
  Serious: No
  Sender: FDA-Public Use
  Company Number: US-ASTRAZENECA-2013SE28536

PATIENT
  Sex: Male

DRUGS (2)
  1. CAPRELSA [Suspect]
     Indication: MEDULLARY THYROID CANCER
     Route: 048
  2. GRAPEFRUIT /JUICE [Interacting]
     Route: 065

REACTIONS (3)
  - Corneal oedema [Recovered/Resolved]
  - Drug interaction [Unknown]
  - Visual impairment [Recovered/Resolved]
